FAERS Safety Report 7305840-7 (Version None)
Quarter: 2011Q1

REPORT INFORMATION
  Report Type: 
  Country: None (occurrence: None)
  Receive Date: 20110222
  Receipt Date: 20110127
  Transmission Date: 20110831
  Serious: Yes (Hospitalization, Other)
  Sender: FDA-Public Use
  Company Number: FR-PFIZER INC-2010147105

PATIENT
  Age: 72 Year
  Sex: Male
  Weight: 72 kg

DRUGS (69)
  1. CALCIUM CHLORIDE ANHYDROUS AND CALCIUM CHLORIDE DIHYDRATE [Concomitant]
     Indication: HYPOCALCAEMIA
     Dosage: 2 G, UNK
     Route: 042
     Dates: start: 20101002, end: 20101002
  2. IPRATROPIUM BROMIDE [Concomitant]
     Indication: BRONCHIAL DISORDER
     Dosage: 0.5 MG, 4X/DAY
     Route: 045
     Dates: start: 20101001, end: 20101006
  3. TERBUTALINE SULFATE [Concomitant]
     Indication: BRONCHIAL DISORDER
     Dosage: 5 MG, 4X/DAY
     Route: 045
     Dates: start: 20101001, end: 20101006
  4. AMIODARONE [Concomitant]
     Dosage: 200 MG, 1X/DAY
     Route: 048
     Dates: start: 20101011, end: 20101019
  5. ESCITALOPRAM OXALATE [Concomitant]
     Indication: DEPRESSION
     Dosage: 10 MG, 1X/DAY
     Route: 048
     Dates: start: 20101021, end: 20101026
  6. EPINEPHRINE [Concomitant]
     Indication: SEPTIC SHOCK
     Dosage: 50 MG, UNK
     Route: 042
     Dates: start: 20101003, end: 20101010
  7. HEPARIN [Concomitant]
     Indication: PULMONARY EMBOLISM
     Dosage: 5333 IU, UNK
     Route: 042
     Dates: start: 20101002, end: 20101002
  8. PRIMAXIN [Concomitant]
     Indication: PERITONITIS
     Route: 042
  9. FOLIC ACID [Concomitant]
     Indication: MEDICAL DIET
     Dosage: 25 MG, UNK
     Route: 042
     Dates: start: 20101014
  10. ALBUMINAR-20 [Concomitant]
     Indication: HYPOALBUMINAEMIA
     Dosage: 100 ML, 3X/DAY
     Route: 042
     Dates: start: 20101001, end: 20101003
  11. ALBUMINAR-20 [Concomitant]
     Dosage: 200 ML, 1X/DAY
     Route: 042
     Dates: start: 20101005, end: 20101005
  12. HETASTARCH [Concomitant]
     Indication: HYPOVOLAEMIA
     Dosage: 500 ML, UNK
     Route: 042
     Dates: start: 20101001
  13. VITAMIN K TAB [Concomitant]
     Indication: MEDICAL DIET
     Dosage: 10 MG, WEEKLY
     Route: 042
     Dates: start: 20101019
  14. ALBUMIN 4% [Concomitant]
     Dosage: 500 ML, 1X/DAY
     Route: 042
     Dates: start: 20101011, end: 20101011
  15. IBUPROFEN [Concomitant]
     Indication: ANAEMIA
     Dosage: 100 MG, 2 IN 1 WEEK
     Route: 042
     Dates: start: 20101001, end: 20101005
  16. DOBUTAMIN ^HEXAL^ [Concomitant]
     Indication: CARDIAC FAILURE
     Dosage: 25 MG/HR
     Route: 042
     Dates: start: 20101002, end: 20101003
  17. NEFOPAM [Concomitant]
     Indication: ANALGESIC THERAPY
     Dosage: 80 MG, UNK
     Route: 042
     Dates: start: 20101009, end: 20101012
  18. LEVOCARNITINE [Concomitant]
     Indication: SUPPLEMENTATION THERAPY
     Dosage: 1 G, 3X/DAY
     Route: 042
     Dates: start: 20101014
  19. HALOPERIDOL [Concomitant]
     Indication: SEDATION
     Dosage: 2 MG, 1X/DAY
     Route: 042
     Dates: start: 20101019, end: 20101019
  20. RED BLOOD CELLS [Concomitant]
     Indication: ANAEMIA
     Dosage: 2 DF, 1X/DAY
     Route: 042
     Dates: start: 20101005, end: 20101006
  21. INNOHEP [Concomitant]
     Indication: PULMONARY EMBOLISM
     Dosage: 0.6 ML, 1X/DAY
     Route: 058
     Dates: end: 20101001
  22. ARGATROBAN [Suspect]
     Indication: HEPARIN-INDUCED THROMBOCYTOPENIA
     Dosage: UNK
     Route: 042
     Dates: start: 20101022, end: 20101022
  23. SUFENTANIL CITRATE [Concomitant]
     Indication: SEDATION
     Dosage: 4 MG/HR
     Route: 042
     Dates: start: 20101001, end: 20101003
  24. ALBUMINAR-20 [Concomitant]
     Dosage: 100 ML, 1X/DAY
     Route: 042
     Dates: start: 20101009, end: 20101009
  25. ASCORBIC ACID [Concomitant]
     Dosage: 1 G, 1X/DAY
     Route: 042
     Dates: start: 20101003, end: 20101012
  26. ALBUMIN 4% [Concomitant]
     Indication: HYPOALBUMINAEMIA
     Dosage: 500 ML, 1X/DAY
     Route: 042
     Dates: start: 20101001, end: 20101004
  27. IMIPENEM [Concomitant]
     Indication: PERITONITIS
     Dosage: 1000 MG, 1X/DAY
     Route: 042
     Dates: start: 20101001, end: 20101002
  28. IMIPENEM [Concomitant]
     Dosage: 1000 MG, 1X/DAY
     Route: 042
     Dates: start: 20101020, end: 20101020
  29. INTERFERON ALFA [Concomitant]
     Indication: ANAEMIA
     Dosage: 2 DF, 1X/DAY
     Route: 042
     Dates: start: 20101002, end: 20101003
  30. HYDROCORTISONE [Concomitant]
     Indication: SHOCK
     Dosage: 200 MG, DAILY
     Route: 042
     Dates: start: 20101001, end: 20101022
  31. HYDROCORTISONE [Concomitant]
     Dosage: 100 MG, 4X/DAY
     Route: 042
     Dates: start: 20101001, end: 20101011
  32. ASCORBIC ACID [Concomitant]
     Indication: MEDICAL DIET
     Dosage: 1 G, 3 IN A WEEK
     Route: 042
     Dates: start: 20101012
  33. BUDESONIDE [Concomitant]
     Indication: BRONCHIAL DISORDER
     Dosage: 1 MG, UNK
     Route: 045
     Dates: start: 20101019, end: 20101019
  34. RED BLOOD CELLS [Concomitant]
     Dosage: 2 DF, 1X/DAY
     Route: 042
     Dates: start: 20101018, end: 20101018
  35. NOREPINEPHRINE [Concomitant]
     Dosage: UNK
     Route: 042
     Dates: start: 20101001, end: 20101020
  36. HEPARIN [Concomitant]
     Dosage: 5000 IU, UNK
     Route: 042
     Dates: start: 20101013, end: 20101021
  37. INSULIN PORCINE [Concomitant]
     Indication: DIABETES MELLITUS INADEQUATE CONTROL
     Dosage: UNK
     Route: 042
     Dates: start: 20101001
  38. HYDROCORTISONE [Concomitant]
     Dosage: 50 MG, 2X/DAY
     Route: 042
     Dates: start: 20101013, end: 20101020
  39. SUFENTANIL CITRATE [Concomitant]
     Dosage: 5 MG/HR
     Route: 042
     Dates: start: 20101006, end: 20101006
  40. ESOMEPRAZOLE [Concomitant]
     Dosage: 40 MG, 1X/DAY
     Route: 042
     Dates: start: 20101011
  41. CISATRACURIUM [Concomitant]
     Dosage: 10 MG, 1X/DAY
     Route: 042
     Dates: start: 20101001, end: 20101002
  42. AMIKACIN [Concomitant]
     Dosage: 2 G, 1X/DAY
     Route: 042
     Dates: start: 20101003, end: 20101003
  43. ACETYLCYSTEINE [Concomitant]
     Indication: RENAL DISORDER
     Dosage: 0.6 G, 2X/DAY
     Route: 042
     Dates: start: 20101001, end: 20101003
  44. HYDROXYZINE [Concomitant]
     Indication: ANXIOLYTIC THERAPY
     Dosage: 50 MG, 1X/DAY
     Route: 042
     Dates: start: 20101012, end: 20101014
  45. FUROSEMIDE [Concomitant]
     Indication: RENAL FAILURE
     Dosage: 40 MG, UNK
     Route: 042
     Dates: start: 20101002, end: 20101002
  46. AMIODARONE [Concomitant]
     Dosage: 200 MG, 1X/DAY
     Route: 048
     Dates: start: 20101015, end: 20101019
  47. ALBUMIN 4% [Concomitant]
     Dosage: 500 ML, 1X/DAY
     Route: 042
     Dates: start: 20101015, end: 20101015
  48. ERYTHROMYCIN [Concomitant]
     Indication: GASTROINTESTINAL HYPERMOTILITY
     Dosage: 250 MG, 3X/DAY
     Route: 042
     Dates: start: 20101010, end: 20101012
  49. LEVOCARNIL [Concomitant]
     Indication: SUPPLEMENTATION THERAPY
     Route: 042
  50. FUROSEMIDE [Concomitant]
     Indication: RENAL IMPAIRMENT
     Dosage: 2 G, DAILY
     Route: 042
     Dates: start: 20101003, end: 20101111
  51. HYDROCORTISONE [Concomitant]
     Dosage: 50 MG, 3X/DAY
     Route: 042
     Dates: start: 20101011, end: 20101013
  52. MIDAZOLAM [Concomitant]
     Indication: SEDATION
     Dosage: 50 MG, UNK
     Route: 042
     Dates: start: 20101002, end: 20101003
  53. IPRATROPIUM BROMIDE [Concomitant]
     Indication: BRONCHOSPASM
     Dosage: 0.5 MG, 3X/DAY
     Route: 045
     Dates: start: 20101021, end: 20101118
  54. AMIODARONE [Concomitant]
     Indication: ARRHYTHMIA
     Dosage: 300 MG, UNK
     Route: 042
     Dates: start: 20101002, end: 20101002
  55. AMIODARONE [Concomitant]
     Dosage: 300 MG, UNK
     Route: 042
     Dates: start: 20101002, end: 20101011
  56. AMIKACIN [Concomitant]
     Indication: PERITONITIS
     Dosage: 1500 MG, 1X/DAY
     Route: 042
     Dates: start: 20101001, end: 20101002
  57. VANCOMYCIN [Concomitant]
     Indication: PERITONITIS
     Dosage: 2 G/L
     Route: 042
     Dates: start: 20101002, end: 20101018
  58. ACETAMINOPHEN [Concomitant]
     Indication: ANALGESIC THERAPY
     Dosage: 1 G, 3X/DAY
     Route: 042
     Dates: start: 20101009, end: 20101012
  59. CYANOCOBALAMIN [Concomitant]
     Indication: MEDICAL DIET
     Dosage: 1000 MG, 1X/DAY
     Route: 042
     Dates: start: 20101014, end: 20101014
  60. PROPOFOL [Concomitant]
     Indication: SEDATION
     Dosage: 100 MG/HR
     Route: 042
     Dates: start: 20101001, end: 20101002
  61. TERBUTALINE SULFATE [Concomitant]
     Indication: BRONCHOSPASM
     Dosage: 5 MG, 3X/DAY
     Route: 045
     Dates: start: 20101021, end: 20101118
  62. ALBUMINAR-20 [Concomitant]
     Dosage: 100 ML, 2X/DAY
     Route: 042
     Dates: start: 20101015, end: 20101020
  63. PHOCYTAN [Concomitant]
     Indication: HYPOPHOSPHATAEMIA
     Dosage: 25 MG/HR
     Route: 042
     Dates: start: 20101004, end: 20101004
  64. ESOMEPRAZOLE [Concomitant]
     Indication: PROPHYLAXIS AGAINST GASTROINTESTINAL ULCER
     Dosage: 40 MG, 2X/DAY
     Route: 042
     Dates: start: 20101001, end: 20101011
  65. SERPASIL-ESIDRIX [Concomitant]
     Indication: SEDATION
     Dosage: 100 MG, 1X/DAY
     Route: 042
  66. AMIKACIN [Concomitant]
     Dosage: 1500 MG, 1X/DAY
     Route: 042
     Dates: start: 20101002, end: 20101008
  67. NOREPINEPHRINE [Concomitant]
     Indication: SEPTIC SHOCK
     Dosage: UNK
     Route: 042
     Dates: start: 20101001, end: 20101020
  68. HEPARIN [Concomitant]
     Indication: GASTRIC ULCER
     Dosage: 533 IU, UNK
     Route: 042
     Dates: start: 20101007, end: 20101010
  69. HEPARIN [Concomitant]
     Dosage: 550 IU, UNK
     Route: 042
     Dates: start: 20101010, end: 20101011

REACTIONS (4)
  - SEPSIS [None]
  - COLITIS [None]
  - PERITONITIS [None]
  - PNEUMATOSIS INTESTINALIS [None]
